FAERS Safety Report 20822384 (Version 2)
Quarter: 2022Q2

REPORT INFORMATION
  Report Type: Spontaneous
  Country: IT (occurrence: IT)
  Receive Date: 20220512
  Receipt Date: 20220526
  Transmission Date: 20220720
  Serious: Yes (Other)
  Sender: FDA-Public Use
  Company Number: IT-TEVA-2022-IT-2035013

PATIENT
  Age: 20 Year
  Sex: Female

DRUGS (6)
  1. METHOTREXATE [Suspect]
     Active Substance: METHOTREXATE
     Indication: Crohn^s disease
     Route: 065
  2. CEFTRIAXONE [Suspect]
     Active Substance: CEFTRIAXONE
     Indication: Hidradenitis
     Route: 065
     Dates: start: 202008
  3. AZATHIOPRINE [Suspect]
     Active Substance: AZATHIOPRINE
     Indication: Crohn^s disease
     Route: 065
  4. INFLIXIMAB [Suspect]
     Active Substance: INFLIXIMAB
     Indication: Crohn^s disease
     Route: 065
     Dates: start: 201803
  5. CLINDAMYCIN [Suspect]
     Active Substance: CLINDAMYCIN
     Indication: Hidradenitis
     Route: 061
     Dates: start: 2020
  6. CLINDAMYCIN [Suspect]
     Active Substance: CLINDAMYCIN
     Route: 065
     Dates: start: 202008

REACTIONS (4)
  - Hidradenitis [Recovered/Resolved]
  - Paradoxical drug reaction [Recovered/Resolved]
  - Loss of therapeutic response [Unknown]
  - Drug ineffective [Unknown]
